FAERS Safety Report 25952389 (Version 1)
Quarter: 2025Q4

REPORT INFORMATION
  Report Type: Spontaneous
  Country: CN (occurrence: CN)
  Receive Date: 20251023
  Receipt Date: 20251023
  Transmission Date: 20260118
  Serious: Yes (Hospitalization)
  Sender: MERCK SHARP & DOHME LLC
  Company Number: CN-009507513-2340222

PATIENT
  Age: 54 Year
  Sex: Male
  Weight: 68 kg

DRUGS (5)
  1. PEMBROLIZUMAB [Suspect]
     Active Substance: PEMBROLIZUMAB
     Indication: Non-small cell lung cancer
     Route: 065
     Dates: start: 20250820, end: 20250929
  2. RIVAROXABAN [Concomitant]
     Active Substance: RIVAROXABAN
     Route: 065
     Dates: start: 20250820
  3. GALCULUS BOVIS AND METRQNIDAZQLE [Concomitant]
     Route: 065
     Dates: start: 20250830
  4. MQNTMORILLONITE [Concomitant]
     Route: 065
     Dates: start: 20250927, end: 20250927
  5. NORFLQXACIN [Concomitant]
     Route: 065
     Dates: start: 20250927, end: 20250928

REACTIONS (1)
  - Hepatic function abnormal [Not Recovered/Not Resolved]

NARRATIVE: CASE EVENT DATE: 20250929
